FAERS Safety Report 19021305 (Version 32)
Quarter: 2022Q4

REPORT INFORMATION
  Report Type: Report from Study
  Country: JP (occurrence: None)
  Receive Date: 20210317
  Receipt Date: 20221206
  Transmission Date: 20230112
  Serious: Yes (Other)
  Sender: FDA-Public Use
  Company Number: JP-ROCHE-2789800

PATIENT
  Age: 68 Year
  Sex: Male
  Weight: 46.3 kg

DRUGS (7)
  1. POLATUZUMAB VEDOTIN [Suspect]
     Active Substance: POLATUZUMAB VEDOTIN
     Indication: Diffuse large B-cell lymphoma
     Dosage: DATE OF THE MOST RECENT DOSE OF 83 MG POLATUZUMAB VEDOTIN PRIOR TO SAE: 04/DEC/2018
     Route: 042
     Dates: start: 20180807
  2. PLACEBO [Suspect]
     Active Substance: UNSPECIFIED INGREDIENT
     Indication: Diffuse large B-cell lymphoma
     Dosage: DATE OF THE MOST RECENT DOSE OF PLACEBO  PRIOR TO SAE: 04/DEC/2018
     Route: 042
     Dates: start: 20180807
  3. RITUXIMAB [Suspect]
     Active Substance: RITUXIMAB
     Indication: Diffuse large B-cell lymphoma
     Dosage: DATE OF THE MOST RECENT DOSE OF RITUXIMAB (563 MG) PRIOR TO SAE: 17/JAN/2019
     Route: 041
     Dates: start: 20180806
  4. DOXORUBICIN [Suspect]
     Active Substance: DOXORUBICIN
     Indication: Diffuse large B-cell lymphoma
     Dosage: DATE OF THE MOST RECENT DOSE OF DOXORUBICIN (75 MG) PRIOR TO AE/SAE: 04/DEC/2018
     Route: 042
     Dates: start: 20180807
  5. CYCLOPHOSPHAMIDE [Suspect]
     Active Substance: CYCLOPHOSPHAMIDE
     Indication: Diffuse large B-cell lymphoma
     Dosage: DATE OF THE MOST RECENT DOSE OF CYCLOPHOSPHAMIDE (1125 MG) PRIOR TO SAE: 04/DEC/2018
     Route: 042
     Dates: start: 20180807
  6. PREDNISOLONE [Suspect]
     Active Substance: PREDNISOLONE
     Indication: Diffuse large B-cell lymphoma
     Dosage: DATE OF THE MOST RECENT DOSE OF PREDNISOLONE (100 MG) PRIOR TO SAE: 07/DEC/2018?PREDNISOLONE 100 MG/
     Route: 048
     Dates: start: 20180806
  7. LEVOLEUCOVORIN CALCIUM [Concomitant]
     Active Substance: LEVOLEUCOVORIN CALCIUM
     Dates: start: 20220907, end: 20221116

REACTIONS (1)
  - Colorectal cancer [Not Recovered/Not Resolved]

NARRATIVE: CASE EVENT DATE: 20210218
